FAERS Safety Report 5270085-1 (Version None)
Quarter: 2007Q1

REPORT INFORMATION
  Report Type: 
  Country: None (occurrence: None)
  Receive Date: 20061213
  Receipt Date: 20050729
  Transmission Date: 20070707
  Serious: No
  Sender: FDA-Public Use
  Company Number: 2005UW11293

PATIENT
  Age: 60 Year
  Sex: Female

DRUGS (1)
  1. NOLVADEX [Suspect]
     Indication: BREAST CANCER
     Dates: end: 20041101

REACTIONS (2)
  - PULMONARY EMBOLISM [None]
  - RETINAL TEAR [None]
